FAERS Safety Report 26152679 (Version 1)
Quarter: 2025Q4

REPORT INFORMATION
  Report Type: Spontaneous
  Country: US (occurrence: US)
  Receive Date: 20251214
  Receipt Date: 20251214
  Transmission Date: 20260117
  Serious: No
  Sender: Atnahs Healthcare
  Company Number: US-ATNAHS-ATNAHS20210100005

PATIENT
  Age: 32 Year
  Sex: Female

DRUGS (2)
  1. VALIUM [Suspect]
     Active Substance: DIAZEPAM
     Indication: Product used for unknown indication
  2. OCREVUS [Suspect]
     Active Substance: OCRELIZUMAB
     Indication: Relapsing-remitting multiple sclerosis
     Dosage: FREQUENCY : 1 FREQUENCY TIME : 6 FREQUENCY TIME UNIT : MONTHS
     Route: 042
     Dates: start: 20201103

REACTIONS (4)
  - Urticaria [Unknown]
  - Peripheral swelling [Unknown]
  - Swollen tongue [Unknown]
  - Swelling face [Unknown]

NARRATIVE: CASE EVENT DATE: 20201103
